FAERS Safety Report 9147298 (Version 1)
Quarter: 2013Q1

REPORT INFORMATION
  Report Type: Not Available
  Country: SE (occurrence: SE)
  Receive Date: 20130307
  Receipt Date: 20130307
  Transmission Date: 20140127
  Serious: Yes (Hospitalization)
  Sender: FDA-Public Use
  Company Number: SE-NAPPMUNDI-GBR-2013-0013349

PATIENT
  Age: 85 Year
  Sex: Male

DRUGS (2)
  1. DOLCONTIN [Suspect]
     Indication: BACK PAIN
     Route: 048
  2. DICLOFENAC [Suspect]
     Indication: BACK PAIN

REACTIONS (2)
  - Renal failure acute [Unknown]
  - Respiratory failure [Unknown]
